FAERS Safety Report 21401189 (Version 1)
Quarter: 2022Q4

REPORT INFORMATION
  Report Type: Spontaneous
  Country: CN (occurrence: CN)
  Receive Date: 20221003
  Receipt Date: 20221003
  Transmission Date: 20230112
  Serious: Yes (Other)
  Sender: FDA-Public Use
  Company Number: CN-MLMSERVICE-20220916-3800701-1

PATIENT
  Age: 6 Decade
  Sex: Male

DRUGS (4)
  1. IRINOTECAN [Suspect]
     Active Substance: IRINOTECAN
     Indication: Hepatic cancer
     Dates: start: 2020, end: 2021
  2. DACOMITINIB [Suspect]
     Active Substance: DACOMITINIB
     Indication: Metastases to lymph nodes
     Dates: start: 2020, end: 2021
  3. NIMOTUZUMAB [Suspect]
     Active Substance: NIMOTUZUMAB
     Indication: Metastases to lymph nodes
     Dates: start: 2020, end: 2021
  4. NIMOTUZUMAB [Suspect]
     Active Substance: NIMOTUZUMAB
     Indication: Metastases to bone
     Dates: start: 2020, end: 2021

REACTIONS (1)
  - Liver disorder [Unknown]
